FAERS Safety Report 16706852 (Version 1)
Quarter: 2019Q3

REPORT INFORMATION
  Report Type: Spontaneous
  Country: US (occurrence: US)
  Receive Date: 20190628
  Receipt Date: 20190628
  Transmission Date: 20191004
  Serious: No
  Sender: FDA-Public Use
  Company Number: None

PATIENT
  Age: 29 Year
  Sex: Female

DRUGS (1)
  1. HYDROXYPROG 250MG/ML (1ML) SDV [Suspect]
     Active Substance: HYDROXYPROGESTERONE
     Dates: start: 201902, end: 201906

REACTIONS (2)
  - Caesarean section [None]
  - Premature baby [None]

NARRATIVE: CASE EVENT DATE: 20190603
